FAERS Safety Report 5494495-2 (Version None)
Quarter: 2007Q4

REPORT INFORMATION
  Report Type: 
  Country: None (occurrence: None)
  Receive Date: 20071022
  Receipt Date: 20071005
  Transmission Date: 20080405
  Serious: Yes (Life-Threatening, Hospitalization)
  Sender: FDA-Public Use
  Company Number: S07-FRA-05475-01

PATIENT
  Age: 74 Year
  Sex: Female

DRUGS (13)
  1. CITALOPRAM HYDROBROMIDE [Suspect]
     Dosage: 10 MG QD PO
     Route: 048
  2. LOVENOX [Suspect]
     Dosage: 4000 IU QD SC
     Route: 058
     Dates: start: 20070628, end: 20070723
  3. ASPIRIN [Suspect]
     Dosage: 160 MG QD PO
     Route: 048
     Dates: start: 20040101, end: 20070723
  4. PRAVASTATIN [Concomitant]
  5. ATARAX [Concomitant]
  6. LAMALINE [Concomitant]
  7. NEURONTIN [Concomitant]
  8. FUNGIZONE [Concomitant]
  9. DIAMICRON (GLICLAZIDE) [Concomitant]
  10. JAMYLENE [Concomitant]
  11. MOVICOL [Concomitant]
  12. LANSOYL (PARAFFIN, LIQUID) [Concomitant]
  13. ACTRAPID (INSULIN) [Concomitant]

REACTIONS (13)
  - ACTIVATED PARTIAL THROMBOPLASTIN TIME SHORTENED [None]
  - BLOOD GLUCOSE INCREASED [None]
  - BLOOD PRESSURE DECREASED [None]
  - DRUG INTERACTION [None]
  - HAEMATEMESIS [None]
  - HYPERNATRAEMIA [None]
  - HYPOKALAEMIA [None]
  - NEUTROPHIL COUNT INCREASED [None]
  - NORMOCHROMIC NORMOCYTIC ANAEMIA [None]
  - OESOPHAGITIS [None]
  - RENAL FAILURE [None]
  - TACHYCARDIA [None]
  - WHITE BLOOD CELL COUNT INCREASED [None]
